FAERS Safety Report 18909100 (Version 5)
Quarter: 2021Q2

REPORT INFORMATION
  Report Type: Report from Study
  Country: JP (occurrence: JP)
  Receive Date: 20210218
  Receipt Date: 20210427
  Transmission Date: 20210717
  Serious: Yes (Death, Other)
  Sender: FDA-Public Use
  Company Number: JP-GLAXOSMITHKLINE-JP2021044229

PATIENT
  Age: 6 Decade
  Sex: Female

DRUGS (9)
  1. CARBOCISTEINE TABLETS [Concomitant]
     Active Substance: CARBOCYSTEINE
     Route: 048
  2. METHYLPREDNISOLONE. [Concomitant]
     Active Substance: METHYLPREDNISOLONE
     Dosage: UNK
     Dates: start: 20190612, end: 20190710
  3. MEPOLIZUMAB [Suspect]
     Active Substance: MEPOLIZUMAB
     Indication: ASTHMA
     Dosage: 100 MG
     Route: 058
     Dates: start: 20190718, end: 20190718
  4. LANSOPRAZOLE?OD TABLETS [Concomitant]
     Indication: PROPHYLAXIS
     Route: 048
  5. PREDNISOLONE TABLETS [Concomitant]
     Active Substance: PREDNISOLONE
     Dosage: UNK
     Dates: start: 20190711, end: 20190821
  6. MEPOLIZUMAB [Suspect]
     Active Substance: MEPOLIZUMAB
     Dosage: 100 MG
     Route: 058
     Dates: start: 20190815, end: 20190815
  7. MEPTIN [Concomitant]
     Active Substance: PROCATEROL HYDROCHLORIDE
     Indication: ASTHMA
     Dosage: 30 ?G, 1D
     Route: 055
  8. DAIPHEN COMBINATION TABLETS [Concomitant]
     Route: 048
  9. BEPOTASTINE BESILATE [Concomitant]
     Active Substance: BEPOTASTINE BESYLATE
     Route: 048

REACTIONS (4)
  - C-reactive protein increased [Fatal]
  - Pneumonia [Fatal]
  - Bronchopulmonary aspergillosis [Fatal]
  - Septic shock [Fatal]

NARRATIVE: CASE EVENT DATE: 20190723
